FAERS Safety Report 23217242 (Version 1)
Quarter: 2023Q4

REPORT INFORMATION
  Report Type: Spontaneous
  Country: CA (occurrence: CA)
  Receive Date: 20231122
  Receipt Date: 20231122
  Transmission Date: 20240110
  Serious: Yes (Other)
  Sender: FDA-Public Use
  Company Number: CA-002147023-NVSC2023CA245239

PATIENT
  Age: 71 Year
  Sex: Female

DRUGS (6)
  1. TRAMETINIB [Suspect]
     Active Substance: TRAMETINIB
     Indication: Metastatic malignant melanoma
     Dosage: UNK
     Route: 065
     Dates: start: 2015, end: 2016
  2. TRAMETINIB [Suspect]
     Active Substance: TRAMETINIB
     Indication: K-ras gene mutation
     Dosage: UNK (RETREATED ON TRIAL)
     Route: 065
  3. TRAMETINIB [Suspect]
     Active Substance: TRAMETINIB
     Indication: BRAF gene mutation
  4. DURVALUMAB [Suspect]
     Active Substance: DURVALUMAB
     Indication: Metastatic malignant melanoma
     Dosage: UNK
     Route: 065
     Dates: start: 2015, end: 2016
  5. DURVALUMAB [Suspect]
     Active Substance: DURVALUMAB
     Indication: K-ras gene mutation
     Dosage: UNK (RETREATED ON TRIAL)
     Route: 065
  6. DURVALUMAB [Suspect]
     Active Substance: DURVALUMAB
     Indication: BRAF gene mutation

REACTIONS (3)
  - Interstitial lung disease [Recovered/Resolved]
  - Organising pneumonia [Not Recovered/Not Resolved]
  - Therapy partial responder [Unknown]
